FAERS Safety Report 6087173-2 (Version None)
Quarter: 2009Q1

REPORT INFORMATION
  Report Type: 
  Country: None (occurrence: None)
  Receive Date: 20090223
  Receipt Date: 20090213
  Transmission Date: 20090719
  Serious: Yes (Life-Threatening, Other)
  Sender: FDA-Public Use
  Company Number: US-MERCK-0901USA03460

PATIENT
  Age: 17 Year
  Sex: Male
  Weight: 124 kg

DRUGS (9)
  1. SINGULAIR [Suspect]
     Indication: ASTHMA
     Route: 048
     Dates: start: 20081118, end: 20081125
  2. SINGULAIR [Suspect]
     Indication: RHINITIS ALLERGIC
     Route: 048
     Dates: start: 20081118, end: 20081125
  3. PREDNISONE [Suspect]
     Indication: ASTHMA
     Route: 048
     Dates: start: 20081121, end: 20081125
  4. LAMICTAL [Concomitant]
     Indication: CONVULSION
     Route: 048
     Dates: start: 20080323
  5. CLARITIN [Concomitant]
     Route: 065
  6. ALBUTEROL [Concomitant]
     Route: 065
  7. AMOXIL [Concomitant]
     Indication: SINUSITIS
     Route: 048
     Dates: start: 20081121, end: 20081130
  8. AMOXIL [Concomitant]
     Indication: INFECTION
     Route: 048
     Dates: start: 20081121, end: 20081130
  9. MOTRIN [Concomitant]
     Route: 048
     Dates: start: 20081101

REACTIONS (4)
  - ASTHMA [None]
  - CONVULSION [None]
  - RHINITIS ALLERGIC [None]
  - SINUSITIS [None]
